FAERS Safety Report 9548355 (Version 3)
Quarter: 2014Q1

REPORT INFORMATION
  Report Type: Spontaneous
  Country: DE (occurrence: None)
  Receive Date: 20130920
  Receipt Date: 20140304
  Transmission Date: 20141002
  Serious: Yes (Other)
  Sender: FDA-Public Use
  Company Number: 1309-1180

PATIENT
  Age: 82 Year
  Sex: Male

DRUGS (2)
  1. EYLEA [Suspect]
     Indication: AGE-RELATED MACULAR DEGENERATION
     Dosage: 1 IN 1 M
     Dates: start: 2013
  2. AVASTIN (BEVACIZUM-AB) [Concomitant]

REACTIONS (3)
  - Hiccups [None]
  - Eye infection [None]
  - Blepharitis [None]
